FAERS Safety Report 8832955 (Version 1)
Quarter: 2012Q4

REPORT INFORMATION
  Report Type: 
  Country: AU (occurrence: AU)
  Receive Date: 20121010
  Receipt Date: 20121010
  Transmission Date: 20130627
  Serious: No
  Sender: FDA-Public Use
  Company Number: AU-ACTELION-A-CH2012-72444

PATIENT
  Age: 0 Day
  Sex: Female

DRUGS (1)
  1. TRACLEER [Suspect]
     Indication: EXPOSURE VIA SEMEN
     Route: 050

REACTIONS (2)
  - Normal newborn [Unknown]
  - Exposure via father [Unknown]
